FAERS Safety Report 21670553 (Version 1)
Quarter: 2022Q4

REPORT INFORMATION
  Report Type: Report from Study
  Country: US (occurrence: US)
  Receive Date: 20221201
  Receipt Date: 20221201
  Transmission Date: 20230112
  Serious: No
  Sender: FDA-Public Use
  Company Number: US-ABBVIE-4212002

PATIENT
  Sex: Female

DRUGS (1)
  1. SKYRIZI [Suspect]
     Active Substance: RISANKIZUMAB-RZAA
     Indication: Psoriasis
     Dosage: THE EVENT ONSET DATE FOR PSORIASIS WORSENING IN A COUPLE OF SPOTS WHEN IT GOT CLOSER TO DUE FOR N...
     Route: 058
     Dates: start: 20220209

REACTIONS (2)
  - Therapeutic response shortened [Unknown]
  - Psoriasis [Unknown]
